FAERS Safety Report 4348065-X (Version None)
Quarter: 2004Q2

REPORT INFORMATION
  Report Type: 
  Country: None (occurrence: None)
  Receive Date: 20040422
  Receipt Date: 20040405
  Transmission Date: 20050107
  Serious: Yes (Death)
  Sender: FDA-Public Use
  Company Number: USA031152251

PATIENT
  Age: 79 Year
  Sex: Female

DRUGS (6)
  1. FORTEO [Suspect]
     Indication: OSTEOPOROSIS
     Dosage: 20 UG/DAY
     Dates: start: 20030715
  2. ALPRAZOLAM [Concomitant]
  3. THEO-DUR [Concomitant]
  4. PROPRANOLOL [Concomitant]
  5. PROPOXYPHENE HCL [Concomitant]
  6. NAUSEA PILL [Concomitant]

REACTIONS (1)
  - ALOPECIA [None]
